FAERS Safety Report 4639160-6 (Version None)
Quarter: 2005Q2

REPORT INFORMATION
  Report Type: 
  Country: None (occurrence: None)
  Receive Date: 20050418
  Receipt Date: 20050406
  Transmission Date: 20051028
  Serious: Yes (Hospitalization)
  Sender: FDA-Public Use
  Company Number: 200510242BFR

PATIENT
  Age: 83 Year
  Sex: Male

DRUGS (9)
  1. CIPROFLOXACIN HCL [Suspect]
     Indication: PROSTATITIS
     Dosage: INTRAVENOUS
     Route: 042
     Dates: start: 20041025, end: 20041108
  2. CIPROFLOXACIN HCL [Suspect]
     Indication: URINARY TRACT INFECTION
     Dosage: INTRAVENOUS
     Route: 042
     Dates: start: 20041025, end: 20041108
  3. BACTRIM [Suspect]
     Indication: PROSTATITIS
     Dosage: QD, ORAL
     Route: 048
     Dates: start: 20041025, end: 20041108
  4. BACTRIM [Suspect]
     Indication: URINARY TRACT INFECTION
     Dosage: QD, ORAL
     Route: 048
     Dates: start: 20041025, end: 20041108
  5. PREVISCAN [Concomitant]
  6. LOVENOX [Concomitant]
  7. LEDERFOLIN [Concomitant]
  8. ROCEPHIN [Concomitant]
  9. OFLOCET [Concomitant]

REACTIONS (6)
  - APLASIA [None]
  - BALANCE DISORDER [None]
  - DRUG TOXICITY [None]
  - GENERAL PHYSICAL HEALTH DETERIORATION [None]
  - PANCYTOPENIA [None]
  - RENAL FAILURE [None]
